FAERS Safety Report 7926556-X (Version None)
Quarter: 2011Q4

REPORT INFORMATION
  Report Type: 
  Country: None (occurrence: None)
  Receive Date: 20111118
  Receipt Date: 20111116
  Transmission Date: 20120403
  Serious: No
  Sender: FDA-Public Use
  Company Number: US-BIOGENIDEC-2011BI043785

PATIENT
  Sex: Female

DRUGS (3)
  1. ZANAFLEX [Concomitant]
     Indication: MUSCLE SPASMS
  2. TYSABRI [Suspect]
     Indication: MULTIPLE SCLEROSIS
     Route: 042
     Dates: start: 20090930
  3. BACLOFEN [Concomitant]
     Indication: MUSCLE SPASMS

REACTIONS (4)
  - MUSCLE SPASMS [None]
  - URINARY TRACT INFECTION [None]
  - DIZZINESS [None]
  - ARTHRALGIA [None]
